FAERS Safety Report 17165944 (Version 7)
Quarter: 2020Q2

REPORT INFORMATION
  Report Type: Spontaneous
  Country: PL (occurrence: PL)
  Receive Date: 20191217
  Receipt Date: 20200630
  Transmission Date: 20200713
  Serious: Yes (Death, Life-Threatening, Hospitalization, Other)
  Sender: FDA-Public Use
  Company Number: PL-MYLANLABS-2019M1125341

PATIENT
  Age: 46 Year
  Sex: Female

DRUGS (41)
  1. CEFUROXIME. [Interacting]
     Active Substance: CEFUROXIME
     Indication: ANTIBIOTIC THERAPY
  2. PANTOPRAZOLE [Interacting]
     Active Substance: PANTOPRAZOLE
     Indication: REFLUX GASTRITIS
     Dosage: 10 MILLIGRAM, QD
     Route: 048
  3. PANTOPRAZOLE [Interacting]
     Active Substance: PANTOPRAZOLE
     Dosage: 1 DOSAGE FORM, QD
     Route: 048
  4. CIPROFLOXACINUM [Interacting]
     Active Substance: CIPROFLOXACIN
     Indication: ANTIBIOTIC THERAPY
     Dosage: UNK
     Route: 065
  5. OLANZAPINE. [Interacting]
     Active Substance: OLANZAPINE
     Dosage: 10 MILLIGRAM, QD
     Route: 048
  6. NIFUROKSAZYD [Interacting]
     Active Substance: NIFUROXAZIDE
     Indication: URINARY TRACT INFECTION
  7. ITOPRIDE [Interacting]
     Active Substance: ITOPRIDE
     Dosage: 50 MILLIGRAM, Q8H
     Route: 065
  8. CIPROFLOXACIN. [Interacting]
     Active Substance: CIPROFLOXACIN
     Indication: URINARY TRACT INFECTION
     Dosage: UNK
     Route: 065
  9. NIFUROXAZIDE [Interacting]
     Active Substance: NIFUROXAZIDE
     Indication: URINARY TRACT INFECTION
     Dosage: UNK
  10. OLANZAPINE. [Interacting]
     Active Substance: OLANZAPINE
     Dosage: UNK
     Route: 048
  11. NIFUROKSAZYD [Interacting]
     Active Substance: NIFUROXAZIDE
     Indication: ANTIBIOTIC THERAPY
  12. CIPROFLOXACIN. [Interacting]
     Active Substance: CIPROFLOXACIN
     Indication: BACTERIAL TEST POSITIVE
  13. ARIPIPRAZOLE. [Interacting]
     Active Substance: ARIPIPRAZOLE
     Dosage: UNK
     Route: 048
  14. NIFUROXAZIDE [Interacting]
     Active Substance: NIFUROXAZIDE
     Indication: DIARRHOEA
     Dosage: UNK
  15. AMOXICILLIN/CLAVULANIC ACID [Interacting]
     Active Substance: AMOXICILLIN\CLAVULANIC ACID
     Indication: BACTERIAL TEST POSITIVE
  16. PANTOPRAZOLE [Suspect]
     Active Substance: PANTOPRAZOLE
     Indication: GASTROOESOPHAGEAL REFLUX DISEASE
     Dosage: UNK
     Route: 065
  17. ITOPRIDE [Interacting]
     Active Substance: ITOPRIDE
     Indication: BIPOLAR DISORDER
     Dosage: 50 MILLIGRAM, QD
     Route: 048
  18. ITOPRIDE [Interacting]
     Active Substance: ITOPRIDE
     Indication: REFLUX GASTRITIS
     Dosage: 3 DOSAGE FORM, QD
     Route: 048
  19. TRIMETHOPRIM SULFAMETHOXAZOLE [Interacting]
     Active Substance: SULFAMETHOXAZOLE\TRIMETHOPRIM
     Indication: ANTIBIOTIC THERAPY
  20. CEFUROXIME. [Interacting]
     Active Substance: CEFUROXIME
     Indication: URINARY TRACT INFECTION
     Dosage: 50 MILLIGRAM, QD
     Route: 048
  21. CEFUROXIME. [Interacting]
     Active Substance: CEFUROXIME
     Indication: BACTERIAL INFECTION
     Dosage: UNK
     Route: 065
  22. OLANZAPINE. [Interacting]
     Active Substance: OLANZAPINE
     Dosage: 10 MILLIGRAM, QD
     Route: 065
  23. OLANZAPINE. [Interacting]
     Active Substance: OLANZAPINE
     Dosage: UNK
     Route: 065
  24. NIFUROKSAZYD [Interacting]
     Active Substance: NIFUROXAZIDE
     Indication: DIARRHOEA
     Dosage: UNK
     Route: 065
  25. LEVOFLOXACIN. [Interacting]
     Active Substance: LEVOFLOXACIN
     Indication: URINARY TRACT INFECTION
  26. AMOXICILLIN/CLAVULANIC ACID [Interacting]
     Active Substance: AMOXICILLIN\CLAVULANIC ACID
     Indication: URINARY TRACT INFECTION
     Dosage: UNK
     Route: 065
  27. AMOXICILLIN/CLAVULANIC ACID [Interacting]
     Active Substance: AMOXICILLIN\CLAVULANIC ACID
     Indication: ANTIBIOTIC THERAPY
  28. PANTOPRAZOLE [Suspect]
     Active Substance: PANTOPRAZOLE
     Indication: GASTROOESOPHAGEAL REFLUX DISEASE
     Dosage: 40 MILLIGRAM, QD
     Route: 048
  29. OLANZAPINE. [Interacting]
     Active Substance: OLANZAPINE
     Indication: BIPOLAR DISORDER
     Dosage: 10 MILLIGRAM, QD
     Route: 048
  30. OLANZAPINE. [Interacting]
     Active Substance: OLANZAPINE
     Dosage: LONG-TERM THERAPY, DAILY 10 MG
  31. TRIMETHOPRIM SULFAMETHOXAZOLE [Interacting]
     Active Substance: SULFAMETHOXAZOLE\TRIMETHOPRIM
     Indication: BACTERIAL INFECTION
     Dosage: UNK
     Route: 065
  32. SULFAMETHOXAZOLE [Interacting]
     Active Substance: SULFAMETHOXAZOLE
     Indication: PRODUCT USED FOR UNKNOWN INDICATION
     Dosage: UNK
     Route: 065
  33. ARIPIPRAZOLE. [Interacting]
     Active Substance: ARIPIPRAZOLE
     Indication: BIPOLAR DISORDER
     Dosage: 7.5 MILLIGRAM, QD
     Route: 048
  34. NIFUROXAZIDE [Interacting]
     Active Substance: NIFUROXAZIDE
     Indication: ABDOMINAL PAIN
     Dosage: UNK
  35. LEVOFLOXACIN. [Interacting]
     Active Substance: LEVOFLOXACIN
     Indication: BACTERIAL INFECTION
     Dosage: UNK
     Route: 065
  36. CIPROFLOXACIN. [Interacting]
     Active Substance: CIPROFLOXACIN
     Indication: ANTIBIOTIC THERAPY
  37. TRIMETHOPRIM. [Interacting]
     Active Substance: TRIMETHOPRIM
     Indication: PRODUCT USED FOR UNKNOWN INDICATION
     Dosage: UNK
     Route: 065
  38. LEVOFLOXACIN. [Interacting]
     Active Substance: LEVOFLOXACIN
     Indication: ANTIBIOTIC THERAPY
  39. ITOPRIDE [Interacting]
     Active Substance: ITOPRIDE
     Indication: GASTROOESOPHAGEAL REFLUX DISEASE
     Dosage: 150 MILLIGRAM, QD 50 MG, TID
     Route: 048
  40. CIPROFLOXACIN. [Interacting]
     Active Substance: CIPROFLOXACIN
     Indication: LEUKOCYTOSIS
  41. TRIMETHOPRIM SULFAMETHOXAZOLE [Interacting]
     Active Substance: SULFAMETHOXAZOLE\TRIMETHOPRIM
     Indication: URINARY TRACT INFECTION

REACTIONS (25)
  - Clostridium difficile infection [Fatal]
  - Drug ineffective [Unknown]
  - Trimethylaminuria [Not Recovered/Not Resolved]
  - White blood cells urine [Unknown]
  - Drug resistance [Unknown]
  - Oral discomfort [Unknown]
  - Parosmia [Fatal]
  - Condition aggravated [Not Recovered/Not Resolved]
  - Inhibitory drug interaction [Not Recovered/Not Resolved]
  - Drug interaction [Not Recovered/Not Resolved]
  - Intestinal perforation [Fatal]
  - Megacolon [Fatal]
  - Pseudomembranous colitis [Not Recovered/Not Resolved]
  - Abdominal pain upper [Not Recovered/Not Resolved]
  - Dyspepsia [Unknown]
  - Gastrooesophageal reflux disease [Unknown]
  - Peritonitis [Fatal]
  - Abdominal pain [Fatal]
  - Pyrexia [Not Recovered/Not Resolved]
  - Bacterial test positive [Fatal]
  - Diarrhoea [Not Recovered/Not Resolved]
  - Breath odour [Unknown]
  - Urine odour abnormal [Not Recovered/Not Resolved]
  - Dysbiosis [Not Recovered/Not Resolved]
  - Taste disorder [Not Recovered/Not Resolved]
